FAERS Safety Report 23181674 (Version 1)
Quarter: 2023Q4

REPORT INFORMATION
  Report Type: Spontaneous
  Country: US (occurrence: None)
  Receive Date: 20231113
  Receipt Date: 20231113
  Transmission Date: 20240110
  Serious: Yes (Life-Threatening, Hospitalization, Disabling)
  Sender: FDA-Public Use
  Company Number: None

PATIENT
  Age: 44 Year
  Sex: Male
  Weight: 69.3 kg

DRUGS (7)
  1. IBUPROFEN [Suspect]
     Active Substance: IBUPROFEN
     Indication: Analgesic therapy
     Dosage: OTHER QUANTITY : 1 TABLET(S);?FREQUENCY : EVERY 6 HOURS;?
     Route: 048
     Dates: start: 20230913, end: 20231009
  2. IBUPROFEN [Suspect]
     Active Substance: IBUPROFEN
     Indication: Wrist fracture
  3. KETOROLAC TROMETHAMINE [Suspect]
     Active Substance: KETOROLAC TROMETHAMINE
  4. DESCOVY [Concomitant]
     Active Substance: EMTRICITABINE\TENOFOVIR ALAFENAMIDE FUMARATE
  5. CLONAZEPAM [Concomitant]
     Active Substance: CLONAZEPAM
  6. PROTONIX [Concomitant]
     Active Substance: PANTOPRAZOLE SODIUM
  7. FERROUS SULFATE [Concomitant]
     Active Substance: FERROUS SULFATE

REACTIONS (14)
  - Abdominal discomfort [None]
  - Abdominal pain [None]
  - Visual impairment [None]
  - Hypoacusis [None]
  - Dizziness [None]
  - Asthenia [None]
  - Abdominal distension [None]
  - Pallor [None]
  - Micturition urgency [None]
  - Syncope [None]
  - Haemoglobin decreased [None]
  - Incontinence [None]
  - Iron deficiency anaemia [None]
  - Intestinal haemorrhage [None]

NARRATIVE: CASE EVENT DATE: 20231014
